FAERS Safety Report 21570483 (Version 6)
Quarter: 2025Q1

REPORT INFORMATION
  Report Type: Report from Study
  Country: US (occurrence: US)
  Receive Date: 20221109
  Receipt Date: 20250109
  Transmission Date: 20250409
  Serious: Yes (Other)
  Sender: TAKEDA
  Company Number: US-TAKEDA-2022TUS083177

PATIENT
  Age: 50 Year
  Sex: Female
  Weight: 51 kg

DRUGS (19)
  1. HUMAN IMMUNOGLOBULIN G [Suspect]
     Active Substance: HUMAN IMMUNOGLOBULIN G
     Indication: Immunodeficiency common variable
     Dosage: 10 GRAM, Q5WEEKS
     Dates: start: 20220909
  2. DIPHENHYDRAMINE [Concomitant]
     Active Substance: DIPHENHYDRAMINE
  3. SYMBICORT [Concomitant]
     Active Substance: BUDESONIDE\FORMOTEROL FUMARATE DIHYDRATE
  4. ADVIL [Concomitant]
     Active Substance: IBUPROFEN
  5. METOPROLOL SUCCINATE [Concomitant]
     Active Substance: METOPROLOL SUCCINATE
  6. EPINEPHRINE [Concomitant]
     Active Substance: EPINEPHRINE
  7. SODIUM CHLORIDE [Concomitant]
     Active Substance: SODIUM CHLORIDE
  8. OMEPRAZOLE [Concomitant]
     Active Substance: OMEPRAZOLE
  9. ACETAMINOPHEN [Concomitant]
     Active Substance: ACETAMINOPHEN
  10. TYLENOL EXTRA STRENGTH [Concomitant]
     Active Substance: ACETAMINOPHEN
  11. ALBUTEROL SULFATE [Concomitant]
     Active Substance: ALBUTEROL SULFATE
  12. LIDOCAINE [Concomitant]
     Active Substance: LIDOCAINE
  13. TOBRAMYCIN [Concomitant]
     Active Substance: TOBRAMYCIN
  14. Nasal [Concomitant]
  15. AZITHROMYCIN [Concomitant]
     Active Substance: AZITHROMYCIN
  16. GAVISCON [Concomitant]
     Active Substance: ALUMINUM HYDROXIDE\MAGNESIUM CARBONATE
  17. TOBI [Concomitant]
     Active Substance: TOBRAMYCIN
  18. DIPHENHYDRAMINE HYDROCHLORIDE [Concomitant]
     Active Substance: DIPHENHYDRAMINE HYDROCHLORIDE
  19. ALBUTEROL SULFATE [Concomitant]
     Active Substance: ALBUTEROL SULFATE

REACTIONS (6)
  - Pneumonia [Not Recovered/Not Resolved]
  - Pneumonia pseudomonal [Unknown]
  - Infection [Unknown]
  - Poor venous access [Unknown]
  - Full blood count increased [Unknown]
  - Pseudomonas test positive [Not Recovered/Not Resolved]

NARRATIVE: CASE EVENT DATE: 20230516
